FAERS Safety Report 8573957-5 (Version None)
Quarter: 2012Q3

REPORT INFORMATION
  Report Type: 
  Country: None (occurrence: None)
  Receive Date: 20120806
  Receipt Date: 20120710
  Transmission Date: 20120928
  Serious: Yes (Other)
  Sender: FDA-Public Use
  Company Number: CO-MERCK-1207COL006786

PATIENT

DRUGS (3)
  1. PEG-INTRON [Suspect]
     Dosage: 80 MICROGRAM, UNK
     Dates: start: 20120321
  2. REBETOL [Suspect]
     Dosage: 2400 MG, UNK
     Dates: start: 20120321
  3. VICTRELIS [Suspect]
     Dosage: 600 MG, UNK
     Dates: start: 20120321

REACTIONS (4)
  - ASTHENIA [None]
  - LEUKOPENIA [None]
  - FATIGUE [None]
  - ANAEMIA [None]
